FAERS Safety Report 7020201-6 (Version None)
Quarter: 2010Q3

REPORT INFORMATION
  Report Type: 
  Country: None (occurrence: None)
  Receive Date: 20100929
  Receipt Date: 20100915
  Transmission Date: 20110219
  Serious: Yes (Other)
  Sender: FDA-Public Use
  Company Number: PHHY2010US60404

PATIENT
  Sex: Male
  Weight: 86.213 kg

DRUGS (5)
  1. DIOVAN [Suspect]
     Indication: HYPERTENSION
     Dosage: 160 MG
  2. CARVEDILOL [Interacting]
     Indication: ARRHYTHMIA
     Dosage: 3.125 MG IN MORNING
     Route: 048
     Dates: start: 20091001
  3. CARVEDILOL [Interacting]
     Dosage: 6.25 MG IN EVENING
     Route: 048
  4. SOTALOL [Interacting]
     Dosage: UNK
  5. LIPITOR [Interacting]
     Dosage: 10 MG

REACTIONS (7)
  - ASTHENIA [None]
  - CATHETERISATION CARDIAC [None]
  - CONDITION AGGRAVATED [None]
  - DRUG INTERACTION [None]
  - DYSPNOEA [None]
  - FATIGUE [None]
  - FRUSTRATION [None]
